FAERS Safety Report 5100189-5 (Version None)
Quarter: 2006Q3

REPORT INFORMATION
  Report Type: 
  Country: None (occurrence: None)
  Receive Date: 20060908
  Receipt Date: 20060808
  Transmission Date: 20061208
  Serious: Yes (Other)
  Sender: FDA-Public Use
  Company Number: US-ALLERGAN-0603577US

PATIENT
  Sex: Female
  Weight: 58.956 kg

DRUGS (4)
  1. ACULAR [Suspect]
     Indication: HYPOTONY OF EYE
     Dosage: UNK, TID
     Route: 047
     Dates: start: 20000901, end: 20060616
  2. FLAX SEED OIL [Concomitant]
     Indication: DRUG USE FOR UNKNOWN INDICATION
  3. INFLAMASE                          /00016202/ [Concomitant]
     Indication: UVEITIS
     Dosage: UNK, TID
     Route: 047
  4. GENTEAL                            /00445101/ [Concomitant]
     Indication: DRY EYE
     Dosage: UNK, QHS
     Route: 047

REACTIONS (2)
  - BLINDNESS TRANSIENT [None]
  - CORNEAL DISORDER [None]
